FAERS Safety Report 22129855 (Version 1)
Quarter: 2023Q1

REPORT INFORMATION
  Report Type: Spontaneous
  Country: US (occurrence: None)
  Receive Date: 20230322
  Receipt Date: 20230322
  Transmission Date: 20230418
  Serious: Yes (unspecified)
  Sender: FDA-Public Use
  Company Number: None

PATIENT
  Age: 36 Year
  Sex: Male
  Weight: 51.75 kg

DRUGS (1)
  1. ROHTO MAX STRENGTH [Suspect]
     Active Substance: NAPHAZOLINE HYDROCHLORIDE\POLYSORBATE 80
     Indication: Dry eye
     Dosage: OTHER QUANTITY : 1 DROP(S);?FREQUENCY : EVERY 4 HOURS;?
     Route: 047
     Dates: start: 20230313, end: 20230322

REACTIONS (4)
  - Eyelid margin crusting [None]
  - Madarosis [None]
  - Eyelid function disorder [None]
  - Instillation site reaction [None]

NARRATIVE: CASE EVENT DATE: 20230319
